FAERS Safety Report 10099917 (Version 1)
Quarter: 2014Q2

REPORT INFORMATION
  Report Type: Spontaneous
  Country: US (occurrence: None)
  Receive Date: 20140422
  Receipt Date: 20140422
  Transmission Date: 20141212
  Serious: Yes (Life-Threatening)
  Sender: FDA-Public Use
  Company Number: None

PATIENT
  Age: 42 Year
  Sex: Female
  Weight: 102.97 kg

DRUGS (2)
  1. TOPAMAX [Suspect]
     Indication: ANXIETY
     Route: 048
  2. TOPAMAX [Suspect]
     Route: 048

REACTIONS (2)
  - Homicidal ideation [None]
  - Suicidal ideation [None]
